FAERS Safety Report 4658997-0 (Version None)
Quarter: 2005Q2

REPORT INFORMATION
  Report Type: 
  Country: None (occurrence: None)
  Receive Date: 20050511
  Receipt Date: 20040513
  Transmission Date: 20051028
  Serious: Yes (Other)
  Sender: FDA-Public Use
  Company Number: US-GLAXOSMITHKLINE-A0512188A

PATIENT
  Age: 47 Year
  Sex: Male

DRUGS (3)
  1. DEXEDRINE [Suspect]
     Indication: ATTENTION DEFICIT/HYPERACTIVITY DISORDER
     Route: 048
     Dates: start: 19950112, end: 20000901
  2. DEXEDRINE [Suspect]
     Indication: DRUG USE FOR UNKNOWN INDICATION
     Route: 048
     Dates: start: 19990914, end: 20000901
  3. DESOXYN [Suspect]
     Indication: ATTENTION DEFICIT/HYPERACTIVITY DISORDER
     Dates: start: 19950511, end: 19990901

REACTIONS (6)
  - ARTHRALGIA [None]
  - BONE MARROW DEPRESSION [None]
  - HAIRY CELL LEUKAEMIA [None]
  - MYALGIA [None]
  - NORMOCHROMIC NORMOCYTIC ANAEMIA [None]
  - PANCYTOPENIA [None]
